FAERS Safety Report 17536251 (Version 1)
Quarter: 2020Q1

REPORT INFORMATION
  Report Type: Report from Study
  Country: JP (occurrence: JP)
  Receive Date: 20200313
  Receipt Date: 20200313
  Transmission Date: 20200409
  Serious: Yes (Hospitalization)
  Sender: FDA-Public Use
  Company Number: JP-CELLTRION INC.-2018JP018545

PATIENT

DRUGS (51)
  1. INFLIXIMAB BS FOR I.V. INFUSION100 MG [NK] [Suspect]
     Active Substance: INFLIXIMAB
     Dosage: 410 MILLIGRAM
     Route: 041
     Dates: start: 20170210, end: 20170210
  2. LEVOTOMIN                          /00038602/ [Concomitant]
     Active Substance: LEVOMEPROMAZINE
     Indication: BIPOLAR I DISORDER
     Dosage: 5 MG, DAILY
  3. ELENTAL [Concomitant]
     Active Substance: AMINO ACIDS\CARBOHYDRATES\MINERALS\SOYBEAN OIL\VITAMINS
     Indication: CROHN^S DISEASE
     Dosage: 0-240 G/DAY
     Dates: start: 20150619
  4. INFLIXIMAB BS FOR I.V. INFUSION100 MG [NK] [Suspect]
     Active Substance: INFLIXIMAB
     Dosage: 410 MILLIGRAM
     Route: 041
     Dates: start: 20171117, end: 20171117
  5. LYRICA [Concomitant]
     Active Substance: PREGABALIN
     Indication: DIABETIC NEUROPATHY
     Dosage: 100 MG, DAILY
     Dates: start: 20151130, end: 20160103
  6. ROPION [Concomitant]
     Active Substance: FLURBIPROFEN AXETIL
     Indication: PAIN
     Dosage: 50 MG, DAILY
     Dates: start: 20160323, end: 20160326
  7. SHOSEIRYUTO [ASARUM SPP. ROOT;CINNAMOMUM CASSIA BARK;EPHEDRA SPP. HERB [Concomitant]
     Active Substance: EPHEDRA SINICA STEM\HERBALS
     Indication: NASOPHARYNGITIS
     Dosage: UNK
     Dates: start: 20161015
  8. TRAZODONE HYDROCHLORIDE. [Concomitant]
     Active Substance: TRAZODONE HYDROCHLORIDE
     Indication: BIPOLAR I DISORDER
     Dosage: UNK
     Dates: start: 201609
  9. COCARL [Concomitant]
     Active Substance: ACETAMINOPHEN
     Indication: ARTHRALGIA
     Dosage: UNK
     Dates: start: 20170308
  10. INFLIXIMAB BS FOR I.V. INFUSION100 MG [NK] [Suspect]
     Active Substance: INFLIXIMAB
     Dosage: 410 MILLIGRAM
     Route: 041
     Dates: start: 20160304, end: 20160304
  11. INFLIXIMAB BS FOR I.V. INFUSION100 MG [NK] [Suspect]
     Active Substance: INFLIXIMAB
     Dosage: 420 MILLIGRAM
     Route: 041
     Dates: start: 20170407, end: 20170407
  12. DEPAKENE [Concomitant]
     Active Substance: VALPROIC ACID
     Indication: BIPOLAR I DISORDER
     Dosage: 300 MG, DAILY
  13. FAMOTIDINE. [Concomitant]
     Active Substance: FAMOTIDINE
     Indication: PROPHYLAXIS AGAINST GASTROINTESTINAL ULCER
     Dosage: 40 MG, DAILY
     Dates: start: 20160323, end: 20160420
  14. MOSAPRIDE CITRATE HYDRATE [Concomitant]
     Active Substance: MOSAPRIDE CITRATE DIHYDRATE
     Indication: ABDOMINAL DISTENSION
     Dosage: UNK
     Dates: start: 20161216
  15. INFLIXIMAB BS FOR I.V. INFUSION100 MG [NK] [Suspect]
     Active Substance: INFLIXIMAB
     Dosage: 430 MILLIGRAM
     Route: 041
     Dates: start: 20160506, end: 20160506
  16. INFLIXIMAB BS FOR I.V. INFUSION100 MG [NK] [Suspect]
     Active Substance: INFLIXIMAB
     Dosage: 420 MILLIGRAM
     Route: 041
     Dates: start: 20160826, end: 20160826
  17. INFLIXIMAB BS FOR I.V. INFUSION100 MG [NK] [Suspect]
     Active Substance: INFLIXIMAB
     Dosage: 410 MILLIGRAM
     Route: 041
     Dates: start: 20161216, end: 20161216
  18. HYDROCORTONE                       /00028601/ [Concomitant]
     Active Substance: HYDROCORTISONE
     Indication: ADRENAL GLAND CANCER
     Dosage: 300 MG, DAILY
     Dates: start: 20160323, end: 20160325
  19. SULBACILLIN [Concomitant]
     Active Substance: AMPICILLIN SODIUM\SULBACTAM SODIUM
     Indication: INFECTION PROPHYLAXIS
     Dosage: 3 G, DAILY
     Dates: start: 20160323, end: 20160325
  20. LOXONIN [Concomitant]
     Active Substance: LOXOPROFEN SODIUM
     Indication: PAIN
     Dosage: 60 MG, DAILY
     Dates: start: 20160327, end: 20160327
  21. ANAFRANIL [Concomitant]
     Active Substance: CLOMIPRAMINE HYDROCHLORIDE
     Indication: BIPOLAR I DISORDER
     Dosage: UNK
     Dates: start: 201609
  22. INFLIXIMAB BS FOR I.V. INFUSION100 MG [NK] [Suspect]
     Active Substance: INFLIXIMAB
     Dosage: 410 MILLIGRAM
     Route: 041
     Dates: start: 20161026, end: 20161026
  23. INFLIXIMAB BS FOR I.V. INFUSION100 MG [NK] [Suspect]
     Active Substance: INFLIXIMAB
     Dosage: 430 MILLIGRAM
     Route: 041
     Dates: start: 20170728, end: 20170728
  24. INFLIXIMAB BS FOR I.V. INFUSION100 MG [NK] [Suspect]
     Active Substance: INFLIXIMAB
     Dosage: 420 MILLIGRAM
     Route: 041
     Dates: start: 20170922, end: 20170922
  25. NEXIUM [Concomitant]
     Active Substance: ESOMEPRAZOLE MAGNESIUM
     Indication: CHRONIC GASTRITIS
     Dosage: 20 MG, DAILY
     Dates: start: 20150619, end: 20160322
  26. ABILIFY [Concomitant]
     Active Substance: ARIPIPRAZOLE
     Indication: BIPOLAR I DISORDER
     Dosage: 12 MG, DAILY
  27. LYRICA [Concomitant]
     Active Substance: PREGABALIN
     Dosage: 150 MG DAILY
     Dates: start: 20160104, end: 20160328
  28. SOLYUGEN G [Concomitant]
     Indication: ADRENAL GLAND CANCER
     Dosage: 500-1500 ML/DAY
     Dates: start: 20160322, end: 20160326
  29. CELECOX [Concomitant]
     Active Substance: CELECOXIB
     Dosage: UNK
     Dates: start: 20170210, end: 20170308
  30. CANAGLU [Concomitant]
     Active Substance: CANAGLIFLOZIN
     Indication: DIABETES MELLITUS
     Dosage: UNK
     Dates: start: 20170816
  31. INFLIXIMAB BS FOR I.V. INFUSION100 MG [NK] [Suspect]
     Active Substance: INFLIXIMAB
     Dosage: 370 MILLIGRAM
     Route: 041
     Dates: start: 20151016, end: 20151016
  32. INFLIXIMAB BS FOR I.V. INFUSION100 MG [NK] [Suspect]
     Active Substance: INFLIXIMAB
     Dosage: 420 MILLIGRAM
     Route: 041
     Dates: start: 20160108, end: 20160108
  33. MIYA-BM [Concomitant]
     Active Substance: CLOSTRIDIUM BUTYRICUM SPORES STRAIN M-55
     Indication: CROHN^S DISEASE
     Dosage: 60 MG, DAILY
     Dates: start: 20150619
  34. MESALAZINE [Concomitant]
     Active Substance: MESALAMINE
     Indication: CROHN^S DISEASE
     Dosage: 4 G, DAILY
     Dates: start: 20150619
  35. RISPERDAL [Concomitant]
     Active Substance: RISPERIDONE
     Indication: BIPOLAR I DISORDER
     Dosage: 0.5 MG, DAILY
  36. METHYCOBAL [Concomitant]
     Active Substance: METHYLCOBALAMIN
     Indication: DIABETIC NEUROPATHY
     Dosage: 1500 ?G, DAILY
     Dates: start: 20151221, end: 20160216
  37. INFLIXIMAB BS FOR I.V. INFUSION100 MG [NK] [Suspect]
     Active Substance: INFLIXIMAB
     Dosage: 390 MILLIGRAM
     Route: 041
     Dates: start: 20151113, end: 20151113
  38. BIO-THREE [Concomitant]
     Active Substance: HERBALS
     Indication: CROHN^S DISEASE
     Dosage: 6 DF, DAILY
     Dates: start: 20150619
  39. LORAZEPAM. [Concomitant]
     Active Substance: LORAZEPAM
     Indication: BIPOLAR I DISORDER
     Dosage: 0.5 MG, DAILY
  40. VEEN 3G [Concomitant]
     Indication: ADRENAL GLAND CANCER
     Dosage: 500-1000 ML/DAY
     Dates: start: 20160322, end: 20160326
  41. SOLYUGEN F [Concomitant]
     Active Substance: CALCIUM CHLORIDE\POTASSIUM CHLORIDE\SODIUM ACETATE\SODIUM CHLORIDE
     Indication: ADRENAL GLAND CANCER
     Dosage: 1000 ML, DAILY
     Dates: start: 20160323, end: 20160323
  42. SOSEGON                            /00052101/ [Concomitant]
     Active Substance: PENTAZOCINE
     Indication: PAIN
     Dosage: 15 MG, DAILY
     Dates: start: 20160323, end: 20160326
  43. ASVERIN [RIBAVIRIN] [Concomitant]
     Indication: NASOPHARYNGITIS
     Dosage: UNK
     Dates: start: 20161015
  44. INFLIXIMAB BS FOR I.V. INFUSION100 MG [NK] [Suspect]
     Active Substance: INFLIXIMAB
     Dosage: 360 MILLIGRAM
     Route: 041
     Dates: start: 20151002, end: 20151002
  45. INFLIXIMAB BS FOR I.V. INFUSION100 MG [NK] [Suspect]
     Active Substance: INFLIXIMAB
     Dosage: 420 MILLIGRAM
     Route: 041
     Dates: start: 20160701, end: 20160701
  46. RELVAR ELLIPTA [FLUTICASONE FUROATE;VILANTEROL TRIFENATATE] [Suspect]
     Active Substance: FLUTICASONE FUROATE\VILANTEROL TRIFENATATE
     Indication: COUGH
     Dosage: ONE TIME A DAY
     Route: 065
     Dates: start: 20170202
  47. CLARITHROMYCIN. [Suspect]
     Active Substance: CLARITHROMYCIN
     Indication: COUGH
     Dosage: 800 MILLIGRAM, QD
     Route: 065
     Dates: start: 20170223
  48. LUNESTA [Concomitant]
     Active Substance: ESZOPICLONE
     Indication: BIPOLAR I DISORDER
     Dosage: 2 MG, DAILY
  49. AKINETON [Concomitant]
     Active Substance: BIPERIDEN HYDROCHLORIDE
     Indication: BIPOLAR I DISORDER
     Dosage: 1 MG, DAILY
  50. CORTRIL [Concomitant]
     Active Substance: HYDROCORTISONE
     Indication: ADRENAL GLAND CANCER
     Dosage: 5-60 MG/DAY
     Dates: start: 20160326, end: 20160920
  51. ATARAX-P                           /00058402/ [Concomitant]
     Active Substance: HYDROXYZINE HYDROCHLORIDE
     Indication: PAIN
     Dosage: 25 MG, DAILY
     Dates: start: 20160323, end: 20160326

REACTIONS (8)
  - Nasopharyngitis [Recovered/Resolved]
  - Alanine aminotransferase increased [Not Recovered/Not Resolved]
  - Eczema [Not Recovered/Not Resolved]
  - Cough [Recovered/Resolved]
  - Adrenal gland cancer [Recovered/Resolved]
  - Aspartate aminotransferase increased [Not Recovered/Not Resolved]
  - Nausea [Not Recovered/Not Resolved]
  - Urticaria [Recovered/Resolved]

NARRATIVE: CASE EVENT DATE: 20160601
